FAERS Safety Report 18419323 (Version 3)
Quarter: 2020Q4

REPORT INFORMATION
  Report Type: Report from Study
  Country: US (occurrence: US)
  Receive Date: 20201023
  Receipt Date: 20201217
  Transmission Date: 20210114
  Serious: Yes (Other)
  Sender: FDA-Public Use
  Company Number: US-GLAXOSMITHKLINE-US2020AMR119547

PATIENT
  Sex: Female

DRUGS (6)
  1. NIRAPARIB [Suspect]
     Active Substance: NIRAPARIB
     Dosage: 200 MG, QD
  2. NIRAPARIB [Suspect]
     Active Substance: NIRAPARIB
     Indication: OVARIAN CANCER
     Dosage: 200 MG, QD
     Route: 065
     Dates: start: 20200610, end: 20200618
  3. NIRAPARIB [Suspect]
     Active Substance: NIRAPARIB
     Dosage: 200 MG, QD
  4. NIRAPARIB [Suspect]
     Active Substance: NIRAPARIB
     Dosage: 200 MG, QD
     Route: 065
     Dates: start: 20200619
  5. NIRAPARIB [Suspect]
     Active Substance: NIRAPARIB
     Dosage: 200 MG, QD
  6. NIRAPARIB [Suspect]
     Active Substance: NIRAPARIB
     Dosage: 200 MG, QD, AT 9:00 PM WITH FOOD
     Route: 065

REACTIONS (11)
  - Heart rate increased [Unknown]
  - Intentional dose omission [Unknown]
  - Eructation [Unknown]
  - Dyspnoea [Unknown]
  - Off label use [Unknown]
  - Blood pressure increased [Recovering/Resolving]
  - Blood pressure fluctuation [Recovered/Resolved]
  - Insomnia [Not Recovered/Not Resolved]
  - Recurrent cancer [Unknown]
  - Ocular hyperaemia [Unknown]
  - Carbohydrate antigen 125 increased [Not Recovered/Not Resolved]
